FAERS Safety Report 7762462-1 (Version None)
Quarter: 2011Q3

REPORT INFORMATION
  Report Type: 
  Country: None (occurrence: None)
  Receive Date: 20110920
  Receipt Date: 20110909
  Transmission Date: 20111222
  Serious: Yes (Other)
  Sender: FDA-Public Use
  Company Number: TW-JNJFOC-20110904705

PATIENT
  Sex: Male
  Weight: 64 kg

DRUGS (6)
  1. GOLIMUMAB [Suspect]
     Route: 058
     Dates: start: 20110811
  2. GOLIMUMAB [Suspect]
     Indication: RHEUMATOID ARTHRITIS
     Route: 058
     Dates: start: 20061108
  3. PLACEBO [Suspect]
     Indication: RHEUMATOID ARTHRITIS
     Route: 048
     Dates: start: 20061109, end: 20080611
  4. METHOTREXATE [Suspect]
     Indication: RHEUMATOID ARTHRITIS
     Route: 048
     Dates: start: 20061011, end: 20061101
  5. LEFLUNOMIDE [Concomitant]
     Route: 048
     Dates: start: 20080618
  6. METHOTREXATE [Concomitant]
     Dates: start: 20080618, end: 20090420

REACTIONS (1)
  - ARTHRITIS INFECTIVE [None]
